FAERS Safety Report 17782765 (Version 1)
Quarter: 2020Q2

REPORT INFORMATION
  Report Type: Spontaneous
  Country: US (occurrence: US)
  Receive Date: 20200514
  Receipt Date: 20200514
  Transmission Date: 20200714
  Serious: Yes (Hospitalization)
  Sender: FDA-Public Use
  Company Number: US-ASTRAZENECA-2020SE60899

PATIENT
  Age: 20721 Day
  Sex: Female
  Weight: 44.9 kg

DRUGS (2)
  1. ASTHMA MEDICATIONS [Concomitant]
  2. FASENRA [Suspect]
     Active Substance: BENRALIZUMAB
     Indication: BRONCHOPULMONARY ASPERGILLOSIS ALLERGIC
     Dosage: 30.0MG UNKNOWN
     Route: 058
     Dates: start: 20200312

REACTIONS (2)
  - Haemoptysis [Unknown]
  - Off label use [Not Recovered/Not Resolved]

NARRATIVE: CASE EVENT DATE: 20200312
